FAERS Safety Report 20446875 (Version 2)
Quarter: 2022Q1

REPORT INFORMATION
  Report Type: Spontaneous
  Country: FR (occurrence: FR)
  Receive Date: 20220208
  Receipt Date: 20220217
  Transmission Date: 20220423
  Serious: Yes (Other)
  Sender: FDA-Public Use
  Company Number: FR-MLMSERVICE-20220118-3324392-1

PATIENT
  Age: 51 Year
  Sex: Male

DRUGS (6)
  1. AZITHROMYCIN [Suspect]
     Active Substance: AZITHROMYCIN
     Indication: Urethritis mycoplasmal
     Dosage: 1 GRAM
     Route: 065
  2. MOXIFLOXACIN [Suspect]
     Active Substance: MOXIFLOXACIN
     Indication: Urethritis mycoplasmal
     Dosage: 400 MILLIGRAM, ONCE A DAY
     Route: 065
     Dates: start: 20190907, end: 20190909
  3. PRISTINAMYCIN [Suspect]
     Active Substance: PRISTINAMYCIN
     Indication: Urethritis mycoplasmal
     Dosage: UNK
     Route: 065
  4. CEFIXIME [Concomitant]
     Active Substance: CEFIXIME
     Indication: Urethritis mycoplasmal
     Dosage: UNK
     Route: 065
  5. DOXYCYCLINE [Concomitant]
     Active Substance: DOXYCYCLINE
     Indication: Urethritis mycoplasmal
     Dosage: 200 MILLIGRAM, ONCE A DAY
     Route: 065
  6. MINOCYCLINE [Concomitant]
     Active Substance: MINOCYCLINE HYDROCHLORIDE
     Indication: Urethritis mycoplasmal
     Dosage: UNK
     Route: 065

REACTIONS (2)
  - Pathogen resistance [Unknown]
  - Tendon pain [Unknown]

NARRATIVE: CASE EVENT DATE: 20190909
